FAERS Safety Report 12336644 (Version 1)
Quarter: 2016Q2

REPORT INFORMATION
  Report Type: Spontaneous
  Country: US (occurrence: None)
  Receive Date: 20160504
  Receipt Date: 20160504
  Transmission Date: 20160815
  Serious: Yes (Other)
  Sender: FDA-Public Use
  Company Number: None

PATIENT
  Age: 54 Year
  Sex: Female
  Weight: 78.93 kg

DRUGS (6)
  1. LISINOPRIL. [Concomitant]
     Active Substance: LISINOPRIL
  2. BROMELAIN [Concomitant]
     Active Substance: BROMELAINS
  3. HYDROCHLOROTHIAZDE 12.5 MG CAP MYL [Suspect]
     Active Substance: HYDROCHLOROTHIAZIDE
     Indication: HYPERTENSION
     Route: 048
     Dates: start: 20160321, end: 20160323
  4. COLLOIDAL SILVER [Concomitant]
     Active Substance: SILVER
  5. VITAMIN D3 [Concomitant]
     Active Substance: CHOLECALCIFEROL
  6. VITAMIN C [Concomitant]
     Active Substance: ASCORBIC ACID

REACTIONS (5)
  - Muscle spasms [None]
  - Fatigue [None]
  - Thinking abnormal [None]
  - Pain [None]
  - Hypotension [None]

NARRATIVE: CASE EVENT DATE: 20160321
